FAERS Safety Report 8381149-8 (Version None)
Quarter: 2012Q2

REPORT INFORMATION
  Report Type: 
  Country: None (occurrence: None)
  Receive Date: 20120523
  Receipt Date: 20120517
  Transmission Date: 20120825
  Serious: Yes (Other)
  Sender: FDA-Public Use
  Company Number: PHEH2012US010342

PATIENT
  Sex: Female

DRUGS (9)
  1. CELEBREX [Concomitant]
  2. NEURONTIN [Concomitant]
  3. ASPIRIN [Concomitant]
  4. VITAMIN B COMPLEX CAP [Concomitant]
  5. SANDOSTATIN LAR [Suspect]
     Dosage: 30 MG, UNK
  6. CYMBALTA [Concomitant]
  7. VITAMIN D [Concomitant]
  8. ASCORBIC ACID [Concomitant]
  9. LOSARTAN POTASSIUM [Concomitant]

REACTIONS (4)
  - MOUTH ULCERATION [None]
  - TONGUE ULCERATION [None]
  - PALATAL OEDEMA [None]
  - ORAL PAIN [None]
